FAERS Safety Report 15571697 (Version 1)
Quarter: 2018Q4

REPORT INFORMATION
  Report Type: Spontaneous
  Country: FR (occurrence: FR)
  Receive Date: 20181031
  Receipt Date: 20181031
  Transmission Date: 20190205
  Serious: Yes (Hospitalization)
  Sender: FDA-Public Use
  Company Number: FR-TEVA-2018-FR-929234

PATIENT
  Age: 68 Year
  Sex: Male
  Weight: 96 kg

DRUGS (11)
  1. CLOPIDOGREL (CHLORHYDRATE DE) [Concomitant]
     Active Substance: CLOPIDOGREL HYDROCHLORIDE
  2. PREDNISONE. [Suspect]
     Active Substance: PREDNISONE
     Indication: INFLAMMATION
     Dosage: 40 MILLIGRAM DAILY;
     Route: 048
     Dates: start: 20180220, end: 20180417
  3. ACIDE FOLIQUE [Concomitant]
     Active Substance: FOLIC ACID
  4. ZOPICLONE [Concomitant]
     Active Substance: ZOPICLONE
  5. HYDREA [Concomitant]
     Active Substance: HYDROXYUREA
  6. GLICLAZIDE [Concomitant]
     Active Substance: GLICLAZIDE
  7. TRAMADOL (CHLORHYDRATE DE) [Concomitant]
     Active Substance: TRAMADOL HYDROCHLORIDE
  8. MOVICOL [Concomitant]
     Active Substance: POLYETHYLENE GLYCOL 3350\POTASSIUM CHLORIDE\SODIUM BICARBONATE\SODIUM CHLORIDE
  9. PARACETAMOL [Concomitant]
     Active Substance: ACETAMINOPHEN
  10. XAGRID 0,5 MG, G?LULE [Concomitant]
  11. ALFUZOSINE (CHLORHYDRATE D^) [Concomitant]
     Active Substance: ALFUZOSIN HYDROCHLORIDE

REACTIONS (5)
  - Amyotrophy [Not Recovered/Not Resolved]
  - Rash erythematous [Not Recovered/Not Resolved]
  - Skin ulcer [Not Recovered/Not Resolved]
  - Actinic keratosis [Not Recovered/Not Resolved]
  - Capillary fragility [Not Recovered/Not Resolved]

NARRATIVE: CASE EVENT DATE: 201803
